FAERS Safety Report 25416410 (Version 1)
Quarter: 2025Q2

REPORT INFORMATION
  Report Type: Spontaneous
  Country: MA (occurrence: MA)
  Receive Date: 20250610
  Receipt Date: 20250610
  Transmission Date: 20250717
  Serious: Yes (Other)
  Sender: TERSERA THERAPEUTICS
  Company Number: MA-ASTRAZENECA-202505GLO028946MA

PATIENT

DRUGS (2)
  1. GOSERELIN [Suspect]
     Active Substance: GOSERELIN
     Indication: Prostate cancer
     Route: 065
  2. ZOLADEX [Suspect]
     Active Substance: GOSERELIN ACETATE
     Indication: Prostate cancer
     Route: 065

REACTIONS (1)
  - Dermo-hypodermitis [Recovered/Resolved]
